FAERS Safety Report 19191925 (Version 2)
Quarter: 2021Q2

REPORT INFORMATION
  Report Type: Spontaneous
  Country: US (occurrence: US)
  Receive Date: 20210428
  Receipt Date: 20210624
  Transmission Date: 20210717
  Serious: Yes (Other)
  Sender: FDA-Public Use
  Company Number: US-ASTRAZENECA-2021A324366

PATIENT
  Age: 30498 Day
  Sex: Female
  Weight: 60.8 kg

DRUGS (2)
  1. CRESTOR [Suspect]
     Active Substance: ROSUVASTATIN CALCIUM
     Dosage: 10.0MG UNKNOWN
     Route: 048
  2. CRESTOR [Suspect]
     Active Substance: ROSUVASTATIN CALCIUM
     Indication: BLOOD CHOLESTEROL
     Route: 048

REACTIONS (16)
  - Limb discomfort [Unknown]
  - Blood glucose decreased [Unknown]
  - Arthralgia [Unknown]
  - Muscle spasms [Unknown]
  - Back pain [Not Recovered/Not Resolved]
  - Nodule [Unknown]
  - Blood cholesterol abnormal [Unknown]
  - Cardiac disorder [Unknown]
  - Blood glucose increased [Recovering/Resolving]
  - Pain [Unknown]
  - Pain in extremity [Not Recovered/Not Resolved]
  - Mobility decreased [Unknown]
  - Sciatica [Unknown]
  - Malaise [Unknown]
  - Sleep disorder due to general medical condition, insomnia type [Unknown]
  - Drug intolerance [Unknown]

NARRATIVE: CASE EVENT DATE: 202002
